FAERS Safety Report 6684149-9 (Version None)
Quarter: 2010Q2

REPORT INFORMATION
  Report Type: 
  Country: None (occurrence: None)
  Receive Date: 20100416
  Receipt Date: 20100414
  Transmission Date: 20101027
  Serious: Yes (Death, Other)
  Sender: FDA-Public Use
  Company Number: PHHY2009PH60901

PATIENT
  Age: 79 Year
  Sex: Male

DRUGS (1)
  1. ACLASTA [Suspect]
     Dosage: 5MG/100ML INFUSION
     Route: 042
     Dates: start: 20081128

REACTIONS (2)
  - DYSURIA [None]
  - PROSTATE CANCER [None]
